FAERS Safety Report 5664736-7 (Version None)
Quarter: 2008Q1

REPORT INFORMATION
  Report Type: 
  Country: None (occurrence: None)
  Receive Date: 20080314
  Receipt Date: 20080229
  Transmission Date: 20080703
  Serious: Yes (Hospitalization, Other)
  Sender: FDA-Public Use
  Company Number: AR-AMGEN-US267899

PATIENT
  Sex: Female

DRUGS (1)
  1. PANITUMUMAB [Suspect]
     Indication: SQUAMOUS CELL CARCINOMA
     Route: 042
     Dates: start: 20080114, end: 20080204

REACTIONS (1)
  - SKIN INFECTION [None]
